FAERS Safety Report 11008238 (Version 1)
Quarter: 2015Q2

REPORT INFORMATION
  Report Type: Spontaneous
  Country: NL (occurrence: None)
  Receive Date: 20150408
  Receipt Date: 20150408
  Transmission Date: 20150821
  Serious: Yes (Other)
  Sender: FDA-Public Use
  Company Number: 2817740

PATIENT
  Age: 50 Year
  Sex: Male

DRUGS (2)
  1. CYTARABINE. [Suspect]
     Active Substance: CYTARABINE
     Indication: ACUTE MYELOID LEUKAEMIA
  2. IDARUBICIN [Suspect]
     Active Substance: IDARUBICIN
     Indication: ACUTE MYELOID LEUKAEMIA

REACTIONS (6)
  - Gastrointestinal inflammation [None]
  - Staphylococcal bacteraemia [None]
  - Cholecystitis [None]
  - Neutropenic colitis [None]
  - Febrile neutropenia [None]
  - Jaundice [None]
